FAERS Safety Report 16431950 (Version 1)
Quarter: 2019Q2

REPORT INFORMATION
  Report Type: Spontaneous
  Country: ES (occurrence: ES)
  Receive Date: 20190614
  Receipt Date: 20190614
  Transmission Date: 20190711
  Serious: Yes (Life-Threatening, Hospitalization)
  Sender: FDA-Public Use
  Company Number: ES-AMREGENT-20191177

PATIENT
  Age: 76 Year
  Sex: Male

DRUGS (16)
  1. OMEPRAZOL [Concomitant]
     Active Substance: OMEPRAZOLE
     Dosage: 28 CAPSULES
     Route: 065
  2. TRAJENTA [Concomitant]
     Active Substance: LINAGLIPTIN
     Dosage: 30 TABLETS
     Route: 048
  3. VITA POS [Concomitant]
     Active Substance: VITAMIN A PALMITATE
     Dosage: UNKNOWN
     Route: 047
  4. LANTUS SOLOSTAR [Concomitant]
     Active Substance: INSULIN GLARGINE
     Dosage: 5X 3 ML PRE-FILLED PENS
     Route: 058
  5. FERINJECT [Suspect]
     Active Substance: FERRIC CARBOXYMALTOSE
     Dosage: 1000 MG, 1 TOTAL
     Route: 042
     Dates: start: 20190514, end: 20190514
  6. FOSTER [Concomitant]
     Active Substance: BECLOMETHASONE\FORMOTEROL
     Dosage: 1X120 DOSE INHALER
     Route: 065
  7. PAZITAL [Concomitant]
     Active Substance: ACETAMINOPHEN\TRAMADOL HYDROCHLORIDE
     Dosage: 60 TABLETS
     Route: 048
  8. ALOPURINOL [Concomitant]
     Active Substance: ALLOPURINOL
     Dosage: 100 TABLETS
     Route: 048
  9. SIMVASTATINA [Concomitant]
     Active Substance: SIMVASTATIN
     Dosage: 28 TABLETS
     Route: 048
  10. ADIRO [Concomitant]
     Active Substance: ASPIRIN
     Dosage: UNKNOWN
     Route: 048
  11. INSRAP [Concomitant]
     Dosage: UNKNOWN
     Route: 065
  12. FERROUS SULFATE. [Concomitant]
     Active Substance: FERROUS SULFATE
     Dosage: 30 TABLETS
     Route: 048
  13. LOBIVON [Concomitant]
     Active Substance: NEBIVOLOL HYDROCHLORIDE
     Dosage: 28 TABLETS
     Route: 048
  14. GABAPENTINA [Concomitant]
     Active Substance: GABAPENTIN
     Dosage: 90 CAPSULES
     Route: 048
  15. FUROSEMIDA [Concomitant]
     Active Substance: FUROSEMIDE
     Dosage: 30 TABLETS
     Route: 048
  16. TOBREX [Concomitant]
     Active Substance: TOBRAMYCIN
     Dosage: UNKNOWN
     Route: 047

REACTIONS (2)
  - Cardiac output decreased [Unknown]
  - Anaphylactic reaction [Unknown]

NARRATIVE: CASE EVENT DATE: 20190514
